FAERS Safety Report 7021428-X (Version None)
Quarter: 2010Q3

REPORT INFORMATION
  Report Type: 
  Country: None (occurrence: None)
  Receive Date: 20100929
  Receipt Date: 20100915
  Transmission Date: 20110219
  Serious: Yes (Other)
  Sender: FDA-Public Use
  Company Number: CA-GENENTECH-286784

PATIENT
  Sex: Female

DRUGS (9)
  1. XOLAIR [Suspect]
     Indication: ASTHMA
     Dosage: 375 MG, Q2W
     Route: 058
     Dates: start: 20070124
  2. XOLAIR [Suspect]
     Dosage: 375 MG, Q2W
     Route: 058
     Dates: start: 20100113
  3. XOLAIR [Suspect]
     Dosage: 375 MG, Q2W
     Route: 058
     Dates: start: 20100210
  4. XOLAIR [Suspect]
     Dosage: 375 MG, Q2W
     Route: 058
     Dates: start: 20100331
  5. XOLAIR [Suspect]
     Dosage: 375 MG, Q2W
     Route: 058
  6. CORTISONE [Concomitant]
     Indication: PRODUCT USED FOR UNKNOWN INDICATION
     Dosage: 50 MG, UNK
  7. IMDUR [Concomitant]
     Indication: PRODUCT USED FOR UNKNOWN INDICATION
  8. VENTOLIN [Concomitant]
     Indication: PRODUCT USED FOR UNKNOWN INDICATION
  9. ASAPHEN [Concomitant]
     Indication: PRODUCT USED FOR UNKNOWN INDICATION

REACTIONS (13)
  - ARRHYTHMIA [None]
  - ASTHMA [None]
  - BLOOD PRESSURE DECREASED [None]
  - BRONCHITIS [None]
  - BRONCHOSPASM [None]
  - CARBON MONOXIDE POISONING [None]
  - CARDIAC DISORDER [None]
  - DYSPNOEA [None]
  - FATIGUE [None]
  - MALAISE [None]
  - PRODUCTIVE COUGH [None]
  - SPUTUM DISCOLOURED [None]
  - UPPER RESPIRATORY TRACT INFECTION [None]
